FAERS Safety Report 15960748 (Version 1)
Quarter: 2019Q1

REPORT INFORMATION
  Report Type: Spontaneous
  Country: US (occurrence: US)
  Receive Date: 20190122
  Receipt Date: 20190122
  Transmission Date: 20190417
  Serious: No
  Sender: FDA-Public Use
  Company Number: None

PATIENT
  Age: 62 Year
  Sex: Male

DRUGS (1)
  1. LORBRENA [Suspect]
     Active Substance: LORLATINIB
     Dates: start: 20190111

REACTIONS (4)
  - Blood cholesterol increased [None]
  - Depressed level of consciousness [None]
  - Food craving [None]
  - Weight increased [None]

NARRATIVE: CASE EVENT DATE: 20190122
